FAERS Safety Report 4644044-3 (Version None)
Quarter: 2005Q2

REPORT INFORMATION
  Report Type: 
  Country: None (occurrence: None)
  Receive Date: 20050425
  Receipt Date: 20050413
  Transmission Date: 20051028
  Serious: Yes (Hospitalization)
  Sender: FDA-Public Use
  Company Number: US-BRISTOL-MYERS SQUIBB COMPANY-12931317

PATIENT
  Age: 81 Year
  Sex: Female
  Weight: 70 kg

DRUGS (3)
  1. COUMADIN [Suspect]
     Indication: HEART VALVE REPLACEMENT
     Dosage: BEGAN 5MG QD ALTERNATE WITH 3MG;1 WEEK LATER,3.5MG QD WITH VARIATION;4/2/05:DOSE TO 1MG QD;4/9 STOP
     Route: 048
     Dates: start: 20041001, end: 20050409
  2. COUMADIN [Suspect]
     Indication: CEREBROVASCULAR ACCIDENT PROPHYLAXIS
     Dosage: BEGAN 5MG QD ALTERNATE WITH 3MG;1 WEEK LATER,3.5MG QD WITH VARIATION;4/2/05:DOSE TO 1MG QD;4/9 STOP
     Route: 048
     Dates: start: 20041001, end: 20050409
  3. LASIX [Concomitant]
     Dosage: DAILY FOR SHORT TIME, ON 2 OCCASIONS.

REACTIONS (6)
  - BLUE TOE SYNDROME [None]
  - CELLULITIS [None]
  - CONTUSION [None]
  - EPISTAXIS [None]
  - HAEMATOMA [None]
  - PLATELET COUNT DECREASED [None]
